FAERS Safety Report 4562391-0 (Version None)
Quarter: 2005Q1

REPORT INFORMATION
  Report Type: 
  Country: None (occurrence: None)
  Receive Date: 20050127
  Receipt Date: 20040211
  Transmission Date: 20050727
  Serious: No
  Sender: FDA-Public Use
  Company Number: US-BRISTOL-MYERS SQUIBB COMPANY-12504064

PATIENT
  Age: 39 Year
  Sex: Male
  Weight: 95 kg

DRUGS (1)
  1. KENALOG [Suspect]
     Indication: PAIN
     Route: 051
     Dates: start: 20030818, end: 20030818

REACTIONS (3)
  - INJECTION SITE ATROPHY [None]
  - PENIS DISORDER [None]
  - SCAR [None]
